FAERS Safety Report 7276626-7 (Version None)
Quarter: 2011Q1

REPORT INFORMATION
  Report Type: 
  Country: None (occurrence: None)
  Receive Date: 20110204
  Receipt Date: 20110128
  Transmission Date: 20110831
  Serious: Yes (Other)
  Sender: FDA-Public Use
  Company Number: US-BAYER-2011-009813

PATIENT
  Sex: Male

DRUGS (3)
  1. PREDNISONE [Concomitant]
     Dosage: UNK
     Dates: end: 20080801
  2. AVELOX [Suspect]
     Indication: CHRONIC SINUSITIS
     Dosage: UNK
     Dates: start: 20020501, end: 20080801
  3. LEVAQUIN [Suspect]
     Indication: CHRONIC SINUSITIS
     Dosage: UNK
     Dates: start: 19990501, end: 20080801

REACTIONS (3)
  - JOINT INSTABILITY [None]
  - LIGAMENT RUPTURE [None]
  - LIGAMENT LAXITY [None]
